FAERS Safety Report 14707581 (Version 1)
Quarter: 2018Q2

REPORT INFORMATION
  Report Type: Spontaneous
  Country: FR (occurrence: FR)
  Receive Date: 20180403
  Receipt Date: 20180403
  Transmission Date: 20180711
  Serious: Yes (Hospitalization)
  Sender: FDA-Public Use
  Company Number: FR-SUN PHARMACEUTICAL INDUSTRIES LTD-2018R1-169069

PATIENT
  Age: 72 Year
  Sex: Female
  Weight: 60 kg

DRUGS (11)
  1. ANSATIPINE 150 MG, GELULE [Interacting]
     Active Substance: RIFABUTIN
     Indication: MYCOBACTERIUM TEST POSITIVE
     Dosage: 3 DF, DAILY
     Route: 048
     Dates: start: 20170426, end: 20170625
  2. LOXEN L P 50 MG, GELULE A LIBERATION PROLONGEE [Concomitant]
     Active Substance: NICARDIPINE HYDROCHLORIDE
     Indication: PRODUCT USED FOR UNKNOWN INDICATION
     Dosage: UNK
     Route: 048
  3. FOSAMAX 70 MG, COMPRIM [Concomitant]
     Indication: PRODUCT USED FOR UNKNOWN INDICATION
     Dosage: 1 DF, 1/WEEK
     Route: 048
     Dates: start: 20170426
  4. CLARITHROMYCINE [Suspect]
     Active Substance: CLARITHROMYCIN
     Indication: MYCOBACTERIUM TEST POSITIVE
     Dosage: 2 G, DAILY
     Route: 048
     Dates: start: 20170426, end: 20170625
  5. UVEDOSE 100 000 UI, SOLUTION BUVABLE EN AMPOULE [Concomitant]
     Active Substance: CHOLECALCIFEROL
     Indication: PRODUCT USED FOR UNKNOWN INDICATION
     Dosage: 1 DF, UNK
     Route: 048
     Dates: start: 20170426
  6. LEVOTHYROX 100 MICROGRAMMES, COMPRIME SECABLE [Concomitant]
     Indication: PRODUCT USED FOR UNKNOWN INDICATION
     Dosage: UNK
     Route: 048
  7. DEXAMBUTOL 500 MG, COMPRIME PELLICULE [Suspect]
     Active Substance: ETHAMBUTOL HYDROCHLORIDE
     Indication: MYCOBACTERIUM TEST POSITIVE
     Dosage: 2 DF, DAILY
     Route: 048
     Dates: start: 20170426, end: 20170625
  8. NEBIVOLOL. [Concomitant]
     Active Substance: NEBIVOLOL
     Indication: PRODUCT USED FOR UNKNOWN INDICATION
     Dosage: UNK
     Route: 048
  9. RIMIFON [Suspect]
     Active Substance: ISONIAZID
     Indication: MYCOBACTERIUM TEST POSITIVE
     Dosage: 2 DF, DAILY
     Route: 048
     Dates: start: 20170426, end: 20170625
  10. PENTASA 2 G, GRANULES EN SACHET-DOSE [Concomitant]
     Indication: PRODUCT USED FOR UNKNOWN INDICATION
     Dosage: UNK
     Route: 048
  11. CORTANCYL 20 MG, COMPRIME [Concomitant]
     Active Substance: PREDNISONE
     Indication: PRODUCT USED FOR UNKNOWN INDICATION
     Dosage: 2.5 DF, DAILY
     Route: 048
     Dates: start: 20170426

REACTIONS (1)
  - Uveitis [Recovered/Resolved]

NARRATIVE: CASE EVENT DATE: 201706
